FAERS Safety Report 13369458 (Version 1)
Quarter: 2017Q1

REPORT INFORMATION
  Report Type: Spontaneous
  Country: US (occurrence: US)
  Receive Date: 20170324
  Receipt Date: 20170324
  Transmission Date: 20170429
  Serious: Yes (Other)
  Sender: FDA-Public Use
  Company Number: US-GLAXOSMITHKLINE-US2017041032

PATIENT
  Sex: Female

DRUGS (1)
  1. FLOVENT [Suspect]
     Active Substance: FLUTICASONE PROPIONATE
     Indication: PRODUCT USED FOR UNKNOWN INDICATION
     Dosage: 1 PUFF(S), BID
     Route: 055

REACTIONS (14)
  - Sinus disorder [Unknown]
  - Blood cholesterol increased [Unknown]
  - Viral infection [Unknown]
  - Cough [Unknown]
  - Gastric disorder [Unknown]
  - Corneal dystrophy [Unknown]
  - Haemoptysis [Unknown]
  - Glaucoma [Unknown]
  - Arthritis [Unknown]
  - Paranasal sinus hypersecretion [Unknown]
  - Cataract [Unknown]
  - Hypertension [Unknown]
  - Fatigue [Unknown]
  - Dyspnoea [Unknown]
